FAERS Safety Report 11941477 (Version 1)
Quarter: 2016Q1

REPORT INFORMATION
  Report Type: Report from Study
  Country: US (occurrence: US)
  Receive Date: 20160122
  Receipt Date: 20160122
  Transmission Date: 20160526
  Serious: Yes (Hospitalization, Other)
  Sender: FDA-Public Use
  Company Number: US-ASTRAZENECA-2014SE30618

PATIENT
  Age: 69 Year
  Sex: Male

DRUGS (13)
  1. GABAPENTIN. [Concomitant]
     Active Substance: GABAPENTIN
     Indication: DIABETIC NEUROPATHY
     Dosage: UNK
     Route: 048
  2. GLIMEPIRIDE. [Suspect]
     Active Substance: GLIMEPIRIDE
     Indication: TYPE 2 DIABETES MELLITUS
     Route: 048
     Dates: start: 20140101
  3. WARFARIN [Concomitant]
     Active Substance: WARFARIN
     Indication: ANTIPLATELET THERAPY
     Dosage: UNK
     Route: 048
  4. MUCINEX [Concomitant]
     Active Substance: GUAIFENESIN
     Indication: COUGH
     Dosage: UNK
     Route: 048
  5. ACETYLSALICYLIC ACID [Concomitant]
     Active Substance: ASPIRIN
     Indication: ANTIPLATELET THERAPY
     Dosage: UNK
     Route: 048
  6. PLACEBO [Suspect]
     Active Substance: UNSPECIFIED INGREDIENT
     Indication: TYPE 2 DIABETES MELLITUS
     Route: 048
     Dates: start: 20140319, end: 20140331
  7. LOSARTAN POTASSIUM. [Concomitant]
     Active Substance: LOSARTAN POTASSIUM
     Indication: HYPERTENSION
     Dosage: UNK
     Route: 048
  8. ISOSORBIDE. [Concomitant]
     Active Substance: ISOSORBIDE
     Indication: HYPERTENSION
     Dosage: UNK
     Route: 048
  9. LANTUS [Suspect]
     Active Substance: INSULIN GLARGINE
     Indication: TYPE 2 DIABETES MELLITUS
     Route: 058
  10. COREG [Concomitant]
     Active Substance: CARVEDILOL
     Indication: HYPERTENSION
     Dosage: UNK
     Route: 048
  11. ATORVASTATIN [Concomitant]
     Active Substance: ATORVASTATIN
     Route: 048
  12. METFORMIN HYDROCHLORIDE. [Suspect]
     Active Substance: METFORMIN HYDROCHLORIDE
     Indication: TYPE 2 DIABETES MELLITUS
     Dosage: NON AZ PRODUCT
     Route: 048
     Dates: start: 20121221
  13. PRILOSEC [Concomitant]
     Active Substance: OMEPRAZOLE MAGNESIUM
     Indication: GASTROOESOPHAGEAL REFLUX DISEASE
     Dosage: UNK
     Route: 048

REACTIONS (4)
  - Confusional state [Recovering/Resolving]
  - Urinary tract infection [Unknown]
  - Hypertension [Recovered/Resolved]
  - Pollakiuria [Recovered/Resolved]

NARRATIVE: CASE EVENT DATE: 20140331
